FAERS Safety Report 8332798-4 (Version None)
Quarter: 2012Q2

REPORT INFORMATION
  Report Type: 
  Country: None (occurrence: None)
  Receive Date: 20120503
  Receipt Date: 20120502
  Transmission Date: 20120825
  Serious: No
  Sender: FDA-Public Use
  Company Number: US-PFIZER INC-2012108146

PATIENT
  Sex: Female
  Weight: 65.76 kg

DRUGS (1)
  1. CHANTIX [Suspect]
     Indication: SMOKING CESSATION THERAPY
     Dosage: UNK
     Route: 048
     Dates: start: 20120401

REACTIONS (7)
  - ABDOMINAL DISCOMFORT [None]
  - MUSCLE SPASMS [None]
  - NAUSEA [None]
  - POOR QUALITY SLEEP [None]
  - PARAESTHESIA [None]
  - DRUG INEFFECTIVE [None]
  - SENSORY DISTURBANCE [None]
